FAERS Safety Report 5805848-4 (Version None)
Quarter: 2008Q3

REPORT INFORMATION
  Report Type: 
  Country: None (occurrence: None)
  Receive Date: 20080708
  Receipt Date: 20080702
  Transmission Date: 20090109
  Serious: Yes (Other)
  Sender: FDA-Public Use
  Company Number: 87689

PATIENT
  Age: 50 Year
  Sex: Female
  Weight: 62.1428 kg

DRUGS (2)
  1. NICOTINE POLACRILEX GUM/2 MG/PERRIGO COMPANY [Suspect]
     Indication: SMOKING CESSATION THERAPY
     Dosage: 2MG/ONCE/ORAL
     Route: 048
     Dates: start: 20080701, end: 20080701
  2. ALLEGRA [Concomitant]

REACTIONS (3)
  - DYSPNOEA [None]
  - PHARYNGEAL OEDEMA [None]
  - URTICARIA [None]
